FAERS Safety Report 9922217 (Version 3)
Quarter: 2014Q1

REPORT INFORMATION
  Report Type: Spontaneous
  Country: CA (occurrence: CA)
  Receive Date: 20140225
  Receipt Date: 20140310
  Transmission Date: 20141002
  Serious: Yes (Life-Threatening, Hospitalization, Other)
  Sender: FDA-Public Use
  Company Number: CA-ACTELION-A-NJ2013-92239

PATIENT
  Age: 73 Year
  Sex: Female
  Weight: 74 kg

DRUGS (9)
  1. TRACLEER [Suspect]
     Indication: PULMONARY ARTERIAL HYPERTENSION
     Dosage: 125 MG, BID
     Route: 048
     Dates: start: 20131004, end: 201311
  2. TRACLEER [Suspect]
     Dosage: 62.5 MG, BID
     Route: 048
     Dates: start: 20130904, end: 20131004
  3. ADCIRCA [Suspect]
     Dosage: UNK
     Dates: start: 201311
  4. RIVAROXABAN [Suspect]
     Dosage: UNK MG, UNK
     Dates: start: 201312
  5. FUROSEMIDE [Concomitant]
     Dosage: 40 MG, UNK
  6. COUMADIN [Concomitant]
  7. DABIGATRAN [Concomitant]
     Dosage: 150 MG, UNK
  8. POTASSIUM [Concomitant]
  9. DIGOXIN [Concomitant]
     Dosage: 125 MCG, OD

REACTIONS (14)
  - Hepatic fibrosis [Unknown]
  - Biopsy liver [Unknown]
  - Drug-induced liver injury [Not Recovered/Not Resolved]
  - Alanine aminotransferase increased [Not Recovered/Not Resolved]
  - Blood alkaline phosphatase increased [Not Recovered/Not Resolved]
  - Blood bilirubin increased [Not Recovered/Not Resolved]
  - Jaundice [Not Recovered/Not Resolved]
  - Decreased appetite [Not Recovered/Not Resolved]
  - Weight decreased [Not Recovered/Not Resolved]
  - Hepatic failure [Unknown]
  - International normalised ratio increased [Not Recovered/Not Resolved]
  - Syncope [Unknown]
  - Gamma-glutamyltransferase increased [Not Recovered/Not Resolved]
  - Aspartate aminotransferase increased [Not Recovered/Not Resolved]
